FAERS Safety Report 4385343-2 (Version None)
Quarter: 2004Q2

REPORT INFORMATION
  Report Type: 
  Country: None (occurrence: None)
  Receive Date: 20040628
  Receipt Date: 20040212
  Transmission Date: 20050107
  Serious: Yes (Death)
  Sender: FDA-Public Use
  Company Number: PHHO2004ES02293

PATIENT
  Age: 56 Year
  Sex: Male

DRUGS (1)
  1. NEORAL [Suspect]
     Indication: LIVER TRANSPLANT
     Dosage: 300 MG / DAY
     Route: 048
     Dates: start: 20020923, end: 20021023

REACTIONS (6)
  - ENTEROCOCCAL INFECTION [None]
  - FUNGAL INFECTION [None]
  - NEISSERIA INFECTION [None]
  - PNEUMONIA [None]
  - RENAL FAILURE [None]
  - SEPTIC SHOCK [None]
